FAERS Safety Report 10416661 (Version 2)
Quarter: 2014Q3

REPORT INFORMATION
  Report Type: Spontaneous
  Country: VE (occurrence: VE)
  Receive Date: 20140828
  Receipt Date: 20140911
  Transmission Date: 20150326
  Serious: Yes (Hospitalization, Other)
  Sender: FDA-Public Use
  Company Number: PHHY2014VE108237

PATIENT
  Age: 35 Year
  Sex: Male

DRUGS (5)
  1. TEGRETOL-XR [Suspect]
     Active Substance: CARBAMAZEPINE
     Indication: EPILEPSY
     Dosage: 400 MG, DAILY (200 MG)
     Route: 048
  2. TEGRETOL [Suspect]
     Active Substance: CARBAMAZEPINE
     Indication: EPILEPSY
     Dosage: 600 MG, DAILY
     Route: 048
  3. TEGRETOL-XR [Suspect]
     Active Substance: CARBAMAZEPINE
     Dosage: 1200 MG, DAILY (400 MG)
     Route: 048
     Dates: end: 20140715
  4. VALCOTE [Concomitant]
     Active Substance: VALPROATE SODIUM
     Indication: SLEEP DISORDER
     Dosage: 500 MG, DAILY
     Route: 048
  5. FENOBARBITAL [Concomitant]
     Active Substance: PHENOBARBITAL
     Indication: EPILEPSY
     Dosage: 100 MG, DAILY
     Route: 048

REACTIONS (10)
  - General physical health deterioration [Not Recovered/Not Resolved]
  - Alcohol interaction [Not Recovered/Not Resolved]
  - Epilepsy [Not Recovered/Not Resolved]
  - Loss of consciousness [Not Recovered/Not Resolved]
  - Depression [Not Recovered/Not Resolved]
  - Anxiety [Not Recovered/Not Resolved]
  - Abnormal behaviour [Unknown]
  - Tobacco interaction [Not Recovered/Not Resolved]
  - Convulsion [Not Recovered/Not Resolved]
  - Hallucination [Not Recovered/Not Resolved]

NARRATIVE: CASE EVENT DATE: 20140824
